FAERS Safety Report 15952336 (Version 3)
Quarter: 2019Q2

REPORT INFORMATION
  Report Type: Spontaneous
  Country: US (occurrence: US)
  Receive Date: 20190211
  Receipt Date: 20190408
  Transmission Date: 20190711
  Serious: Yes (Death, Other)
  Sender: FDA-Public Use
  Company Number: US-ASTRAZENECA-2018SF65197

PATIENT
  Age: 24890 Day
  Sex: Female

DRUGS (22)
  1. HYDROCODONE-APAP [Concomitant]
     Active Substance: ACETAMINOPHEN\HYDROCODONE
     Indication: PAIN
  2. NEXIUM [Suspect]
     Active Substance: ESOMEPRAZOLE MAGNESIUM
     Indication: ABDOMINAL DISCOMFORT
     Dosage: FOR MULTIPLE AND VARIOUS YEARS
     Route: 048
  3. SPIRIVA [Concomitant]
     Active Substance: TIOTROPIUM BROMIDE MONOHYDRATE
  4. XOPENEX [Concomitant]
     Active Substance: LEVALBUTEROL HYDROCHLORIDE
     Indication: ASTHMA
  5. CLONAZEPAM. [Concomitant]
     Active Substance: CLONAZEPAM
  6. SYNTHROID [Concomitant]
     Active Substance: LEVOTHYROXINE SODIUM
  7. OXYCODONE AND ACETAMINOPHEN [Concomitant]
     Active Substance: ACETAMINOPHEN\OXYCODONE HYDROCHLORIDE
     Indication: PAIN
  8. WARFARIN [Concomitant]
     Active Substance: WARFARIN
  9. ALPRAZOLAM. [Concomitant]
     Active Substance: ALPRAZOLAM
  10. LEVOFLOXACIN. [Concomitant]
     Active Substance: LEVOFLOXACIN
  11. NEXIUM [Suspect]
     Active Substance: ESOMEPRAZOLE MAGNESIUM
     Indication: GASTROOESOPHAGEAL REFLUX DISEASE
     Dosage: FOR MULTIPLE AND VARIOUS YEARS
     Route: 048
  12. NOVOLIN [Concomitant]
     Active Substance: INSULIN HUMAN
  13. BIOTIN [Concomitant]
     Active Substance: BIOTIN
  14. NEXIUM [Suspect]
     Active Substance: ESOMEPRAZOLE MAGNESIUM
     Indication: GASTROOESOPHAGEAL REFLUX DISEASE
     Dosage: APPROXIMATELY 20 YEARS
     Route: 048
  15. LASIX [Concomitant]
     Active Substance: FUROSEMIDE
  16. BENZONATATE. [Concomitant]
     Active Substance: BENZONATATE
     Indication: TREMOR
  17. NEXIUM [Suspect]
     Active Substance: ESOMEPRAZOLE MAGNESIUM
     Indication: ABDOMINAL DISCOMFORT
     Dosage: APPROXIMATELY 20 YEARS
     Route: 048
  18. POTASSIUM CHLORIDE. [Concomitant]
     Active Substance: POTASSIUM CHLORIDE
  19. HUMALOG [Concomitant]
     Active Substance: INSULIN LISPRO
     Indication: DIABETES MELLITUS
  20. LEVOTHYROXINE. [Concomitant]
     Active Substance: LEVOTHYROXINE
  21. MAALOX ANTACID [Concomitant]
     Active Substance: ALUMINUM HYDROXIDE\DIMETHICONE\MAGNESIUM HYDROXIDE
  22. SINGULAIR [Concomitant]
     Active Substance: MONTELUKAST SODIUM

REACTIONS (6)
  - Renal failure [Unknown]
  - Death [Fatal]
  - Chronic kidney disease [Unknown]
  - End stage renal disease [Not Recovered/Not Resolved]
  - Renal injury [Unknown]
  - Rebound acid hypersecretion [Unknown]

NARRATIVE: CASE EVENT DATE: 20140227
